FAERS Safety Report 6403115-1 (Version None)
Quarter: 2009Q4

REPORT INFORMATION
  Report Type: 
  Country: None (occurrence: None)
  Receive Date: 20091015
  Receipt Date: 20091015
  Transmission Date: 20100525
  Serious: Yes (Other)
  Sender: FDA-Public Use
  Company Number: None

PATIENT
  Age: 63 Year
  Sex: Female
  Weight: 71.6683 kg

DRUGS (2)
  1. METOPROLOL [Suspect]
     Indication: HYPERTENSION
     Dosage: #30 ONE PO OD
     Route: 048
     Dates: start: 20051001
  2. TOPROL-XL [Suspect]

REACTIONS (2)
  - PRODUCT SUBSTITUTION ISSUE [None]
  - URTICARIA [None]
